FAERS Safety Report 7516097-6 (Version None)
Quarter: 2011Q2

REPORT INFORMATION
  Report Type: 
  Country: None (occurrence: None)
  Receive Date: 20110601
  Receipt Date: 20110517
  Transmission Date: 20111010
  Serious: Yes (Other)
  Sender: FDA-Public Use
  Company Number: US-SOLVAY-00211002948

PATIENT
  Age: 55 Year
  Sex: Male
  Weight: 76.363 kg

DRUGS (7)
  1. ANDROGEL [Suspect]
     Dosage: DAILY DOSE: 5 GRAM(S), VIA PUMP
     Route: 062
     Dates: start: 20110405
  2. ETODOLAC [Suspect]
     Indication: RHEUMATOID ARTHRITIS
     Dosage: DAILY DOSE: 800 MILLIGRAM(S)
     Route: 048
     Dates: start: 20110427
  3. METHOCARBAMOL [Suspect]
     Indication: MYALGIA
     Dosage: DAILY DOSE: 1500 MILLIGRAM(S)
     Route: 048
     Dates: start: 20110427
  4. UNKNOWN BLOOD PRESSURE MEDICATION [Concomitant]
     Indication: BLOOD PRESSURE INCREASED
     Dosage: DAILY DOSE:  UNKNOWN,
     Route: 065
     Dates: start: 20100101, end: 20110301
  5. ANDROGEL [Suspect]
     Indication: BLOOD TESTOSTERONE DECREASED
     Dosage: DAILY DOSE: 5 GRAM(S), VIA PUMP
     Route: 062
     Dates: start: 20100101, end: 20110404
  6. METHYLPREDNISOLONE [Suspect]
     Indication: CERVICAL VERTEBRAL FRACTURE
     Dosage: DAILY DOSE:  UNKNOWN, AS USED: 4MILLIGRAM(S), DECREASING SELF LIMITING DOSE
     Route: 048
     Dates: start: 20110427
  7. NORCO [Concomitant]
     Indication: PAIN
     Dosage: DAILY DOSE:  UNKNOWN, FREQUENCY: AS NEEDED, 10/325MILLIGRAM(S)
     Route: 048

REACTIONS (13)
  - ASTHENIA [None]
  - APPLICATION SITE REACTION [None]
  - CERVICAL VERTEBRAL FRACTURE [None]
  - DRUG ADMINISTRATION ERROR [None]
  - ANXIETY [None]
  - APPLICATION SITE ERYTHEMA [None]
  - NAUSEA [None]
  - MUSCULOSKELETAL STIFFNESS [None]
  - LETHARGY [None]
  - INTERVERTEBRAL DISC PROTRUSION [None]
  - BLOOD PRESSURE INCREASED [None]
  - HEADACHE [None]
  - FLUSHING [None]
